FAERS Safety Report 4298883-1 (Version None)
Quarter: 2004Q1

REPORT INFORMATION
  Report Type: 
  Country: None (occurrence: None)
  Receive Date: 20040126
  Receipt Date: 20031110
  Transmission Date: 20041129
  Serious: No
  Sender: FDA-Public Use
  Company Number: USA031152116

PATIENT
  Age: 10 Year
  Sex: Female
  Weight: 26 kg

DRUGS (5)
  1. STRATTERA [Suspect]
     Dosage: 40 MG/DAY
  2. DEXEDRINE (DEXAMFETAMINE SULFATE) [Concomitant]
  3. GENOTROPIN [Concomitant]
  4. CLONIDINE [Concomitant]
  5. .. [Concomitant]

REACTIONS (6)
  - ANXIETY [None]
  - DRUG EFFECT DECREASED [None]
  - OBSESSIVE THOUGHTS [None]
  - PRESCRIBED OVERDOSE [None]
  - PSYCHOMOTOR HYPERACTIVITY [None]
  - RESTLESS LEGS SYNDROME [None]
